FAERS Safety Report 6354788-3 (Version None)
Quarter: 2009Q3

REPORT INFORMATION
  Report Type: 
  Country: None (occurrence: None)
  Receive Date: 20090909
  Receipt Date: 20090831
  Transmission Date: 20100115
  Serious: Yes (Hospitalization)
  Sender: FDA-Public Use
  Company Number: TCI2009A03498

PATIENT

DRUGS (2)
  1. LANSOPRAZOLE [Suspect]
     Indication: PROPHYLAXIS AGAINST GASTROINTESTINAL ULCER
     Dosage: 15 MG (15 MG, 1-2) (15 MG, 1 IN 1 D), ORAL
     Route: 048
     Dates: start: 20090420
  2. LANSOPRAZOLE [Suspect]
     Indication: PROPHYLAXIS AGAINST GASTROINTESTINAL ULCER
     Dosage: 15 MG 915 MG, 1 IN 1 D), PER ORAL
     Route: 048
     Dates: end: 20090419

REACTIONS (1)
  - EPIGLOTTITIS [None]
